FAERS Safety Report 6201973-7 (Version None)
Quarter: 2009Q2

REPORT INFORMATION
  Report Type: 
  Country: None (occurrence: None)
  Receive Date: 20090526
  Receipt Date: 20090515
  Transmission Date: 20091009
  Serious: Yes (Hospitalization)
  Sender: FDA-Public Use
  Company Number: A0782835A

PATIENT
  Age: 76 Year
  Sex: Female
  Weight: 63.6 kg

DRUGS (11)
  1. AVANDIA [Suspect]
     Indication: DIABETES MELLITUS
     Dosage: 4MG PER DAY
     Route: 048
     Dates: start: 20060601, end: 20070201
  2. METFORMIN HCL [Concomitant]
  3. GLUCOTROL [Concomitant]
  4. COREG [Concomitant]
  5. HYDROCHLOROTHIAZIDE [Concomitant]
  6. CRESTOR [Concomitant]
  7. LOTREL [Concomitant]
  8. ENALAPRIL MALEATE [Concomitant]
  9. CARTIA XT [Concomitant]
  10. NEURONTIN [Concomitant]
  11. GLIPIZIDE [Concomitant]

REACTIONS (3)
  - ACUTE CORONARY SYNDROME [None]
  - ACUTE MYOCARDIAL INFARCTION [None]
  - CARDIAC FAILURE [None]
